FAERS Safety Report 9547435 (Version 1)
Quarter: 2013Q2

REPORT INFORMATION
  Report Type: Spontaneous
  Country: US (occurrence: None)
  Receive Date: 20130524
  Receipt Date: 20130524
  Transmission Date: 20140414
  Serious: No
  Sender: FDA-Public Use
  Company Number: PHEH213US004345

PATIENT
  Age: 44 Year
  Sex: Male

DRUGS (5)
  1. GILENYA (FINGOLIMOD) CAPSULE, 0.5MG [Suspect]
     Indication: MULTIPLE SCLEROSIS
     Route: 048
     Dates: start: 20110729
  2. GABAPENTIN (GABAPENTIN) [Concomitant]
  3. ZOLPIDEM (ZOLPIDEM) [Concomitant]
  4. VITAMIN D3 (COLECALCIFEROL) [Concomitant]
  5. CYMBALTA (DULOXETINE HYDROCHLORIDE) [Concomitant]

REACTIONS (5)
  - Muscle tightness [None]
  - Musculoskeletal pain [None]
  - Intervertebral disc protrusion [None]
  - Arthralgia [None]
  - Paraesthesia [None]
